FAERS Safety Report 9851690 (Version 1)
Quarter: 2014Q1

REPORT INFORMATION
  Report Type: Spontaneous
  Country: FR (occurrence: FR)
  Receive Date: 20140129
  Receipt Date: 20140129
  Transmission Date: 20141002
  Serious: Yes (Life-Threatening, Other)
  Sender: FDA-Public Use
  Company Number: FR-009507513-1401FRA010407

PATIENT
  Age: 78 Year
  Sex: Female

DRUGS (3)
  1. JANUMET [Suspect]
     Dosage: UNK
     Route: 048
  2. BACTRIM [Suspect]
     Dosage: UNK
     Route: 048
     Dates: start: 201310, end: 20131106
  3. DAONIL [Suspect]
     Dosage: UNK
     Route: 048

REACTIONS (1)
  - Hypoglycaemic coma [Recovered/Resolved]
